FAERS Safety Report 17804365 (Version 1)
Quarter: 2020Q2

REPORT INFORMATION
  Report Type: Spontaneous
  Country: IN (occurrence: IN)
  Receive Date: 20200519
  Receipt Date: 20200519
  Transmission Date: 20200714
  Serious: Yes (Life-Threatening, Hospitalization)
  Sender: FDA-Public Use
  Company Number: IN-MYLANLABS-2020M1049978

PATIENT
  Age: 12 Day
  Sex: Male

DRUGS (3)
  1. MEROPENEM. [Suspect]
     Active Substance: MEROPENEM
     Indication: STAPHYLOCOCCAL SEPSIS
     Route: 042
  2. AMIKACIN. [Suspect]
     Active Substance: AMIKACIN
     Indication: STAPHYLOCOCCAL SEPSIS
     Route: 042
  3. VANCOMYCIN [Suspect]
     Active Substance: VANCOMYCIN
     Indication: STAPHYLOCOCCAL SEPSIS
     Route: 042

REACTIONS (4)
  - Shock [Recovering/Resolving]
  - Candida sepsis [Recovering/Resolving]
  - Skin hyperpigmentation [Recovered/Resolved]
  - Systemic candida [Recovering/Resolving]
